FAERS Safety Report 7590760-3 (Version None)
Quarter: 2011Q3

REPORT INFORMATION
  Report Type: 
  Country: None (occurrence: None)
  Receive Date: 20110705
  Receipt Date: 20110620
  Transmission Date: 20111222
  Serious: Yes (Death, Hospitalization, Other)
  Sender: FDA-Public Use
  Company Number: PHHY2011DE49756

PATIENT
  Sex: Male
  Weight: 103 kg

DRUGS (15)
  1. ACTRAPID HUMAN [Concomitant]
     Indication: DIABETES MELLITUS
     Dosage: 20 IU, UNK
     Route: 058
     Dates: start: 20100323
  2. GLUCOBAY [Concomitant]
     Indication: DIABETES MELLITUS
     Dosage: 1 DF, QD
     Route: 048
     Dates: start: 20100323
  3. HYDROCHLOROTHIAZIDE [Suspect]
     Indication: OEDEMA
     Dosage: UNK
     Route: 048
     Dates: start: 20070708
  4. PANTOPRAZOLE [Concomitant]
     Indication: BARRETT'S OESOPHAGUS
     Dosage: 40 MG, UNK
     Route: 048
     Dates: start: 20100323
  5. IRON SULFATETHIAMIN COMPOUND TAB [Concomitant]
     Indication: GASTROINTESTINAL CARCINOMA
     Dosage: UNK
     Route: 048
     Dates: start: 20100325
  6. ATACAND [Concomitant]
     Indication: HYPERTENSION
     Dosage: 32 MG, UNK
     Dates: start: 20071010
  7. BISOPROLOL FUMARATE [Concomitant]
     Indication: HYPERTENSION
     Dosage: 10 MG, UNK
     Dates: start: 20070414
  8. CALCIUM CHANNEL BLOCKERS [Concomitant]
     Dosage: UNK
     Dates: start: 20100417
  9. SIMVASTATIN [Concomitant]
     Indication: HYPERCHOLESTEROLAEMIA
     Dosage: 20 MG, UNK
     Route: 048
     Dates: start: 20071019
  10. RASILEZ HCT [Suspect]
     Indication: HYPERTENSION
     Dosage: 1 DF, QD
     Route: 048
     Dates: start: 20090310
  11. VASODILATORS USED IN CARDIAC DISEASES [Concomitant]
  12. NSAID'S [Concomitant]
  13. PLATELETS [Concomitant]
  14. BISOPROLOL FUMARATE [Concomitant]
     Indication: TACHYCARDIA
  15. PROTAPHANE MC [Concomitant]
     Indication: DIABETES MELLITUS
     Dosage: 10 IU, UNK
     Dates: start: 20100323

REACTIONS (13)
  - MYOCARDIAL INFARCTION [None]
  - BARRETT'S OESOPHAGUS [None]
  - PNEUMONIA [None]
  - COMA [None]
  - GASTROINTESTINAL HAEMORRHAGE [None]
  - ALBUMINURIA [None]
  - LEFT VENTRICULAR HYPERTROPHY [None]
  - CARDIAC FAILURE [None]
  - ANGINA PECTORIS [None]
  - GASTROINTESTINAL CARCINOMA [None]
  - BLOOD CREATININE INCREASED [None]
  - DYSPNOEA [None]
  - IRON DEFICIENCY ANAEMIA [None]
